FAERS Safety Report 24701573 (Version 1)
Quarter: 2024Q4

REPORT INFORMATION
  Report Type: Spontaneous
  Country: US (occurrence: None)
  Receive Date: 20241204
  Receipt Date: 20241204
  Transmission Date: 20250115
  Serious: No
  Sender: Public
  Company Number: None

PATIENT
  Age: 30 Year
  Weight: 81.65 kg

DRUGS (1)
  1. ENTYVIO [Suspect]
     Active Substance: VEDOLIZUMAB

REACTIONS (2)
  - Wrong technique in product usage process [None]
  - Incorrect dose administered [None]

NARRATIVE: CASE EVENT DATE: 20241204
